FAERS Safety Report 25003453 (Version 1)
Quarter: 2025Q1

REPORT INFORMATION
  Report Type: Spontaneous
  Country: CN (occurrence: CN)
  Receive Date: 20250224
  Receipt Date: 20250224
  Transmission Date: 20250409
  Serious: Yes (Other)
  Sender: Unknown Manufacturer
  Company Number: CN-ASTRAZENECA-202502CHN010688CN

PATIENT

DRUGS (1)
  1. METOPROLOL SUCCINATE [Suspect]
     Active Substance: METOPROLOL SUCCINATE
     Indication: Coronary artery disease
     Dosage: 23.75 MILLIGRAM, QD
     Route: 048
     Dates: start: 20250201, end: 20250202

REACTIONS (1)
  - Atrial fibrillation [Recovering/Resolving]
